FAERS Safety Report 10165346 (Version 1)
Quarter: 2014Q2

REPORT INFORMATION
  Report Type: Spontaneous
  Country: US (occurrence: US)
  Receive Date: 20140510
  Receipt Date: 20140510
  Transmission Date: 20141212
  Serious: Yes (Other)
  Sender: FDA-Public Use
  Company Number: US-BRISTOL-MYERS SQUIBB COMPANY-20385316

PATIENT
  Age: 47 Year
  Sex: Female

DRUGS (3)
  1. BYDUREON [Suspect]
     Indication: TYPE 2 DIABETES MELLITUS
     Route: 058
  2. METFORMIN [Concomitant]
  3. GLYBURIDE [Concomitant]
     Dosage: TABS

REACTIONS (3)
  - Pancreatitis [Unknown]
  - Abdominal pain [Unknown]
  - Vomiting [Unknown]
